FAERS Safety Report 8447025-7 (Version None)
Quarter: 2012Q2

REPORT INFORMATION
  Report Type: 
  Country: None (occurrence: None)
  Receive Date: 20120619
  Receipt Date: 20120614
  Transmission Date: 20120825
  Serious: No
  Sender: FDA-Public Use
  Company Number: US-BAYER-2012-059585

PATIENT
  Sex: Female

DRUGS (12)
  1. CYMBALTA [Concomitant]
     Dosage: UNK
  2. MIRAPEX [Concomitant]
     Dosage: 1 MG
  3. BETASERON [Suspect]
  4. DETROL LA [Concomitant]
     Dosage: 2 MG
  5. CYMBALTA [Concomitant]
     Dosage: 20 MG
  6. LIPITOR [Concomitant]
     Dosage: 10 MG
  7. HYDROCHLOROTHIAZIDE [Concomitant]
     Dosage: 12.5 MG
  8. FOSAMAX [Concomitant]
     Dosage: 70 MG
  9. MULTI-VITAMIN [Concomitant]
  10. NIACIN [Concomitant]
     Dosage: 400 MG
  11. BETASERON [Suspect]
     Dosage: 0.25 MG, QOD
     Route: 058
  12. VITAMIN D [Concomitant]
     Dosage: 1000 UNIT

REACTIONS (1)
  - INFLUENZA LIKE ILLNESS [None]
